FAERS Safety Report 7599418-8 (Version None)
Quarter: 2011Q3

REPORT INFORMATION
  Report Type: 
  Country: None (occurrence: None)
  Receive Date: 20110711
  Receipt Date: 20080129
  Transmission Date: 20111222
  Serious: Yes (Death, Hospitalization, Disabling, Other)
  Sender: FDA-Public Use
  Company Number: US-BAYER-200816202NA

PATIENT
  Age: 71 Year
  Sex: Male
  Weight: 83.447 kg

DRUGS (33)
  1. TRASYLOL [Suspect]
     Dosage: 25 ML/HOUR INFUSION
     Route: 042
     Dates: start: 20031009, end: 20031009
  2. CATAPRES [Concomitant]
     Dosage: 0.1 MG, BID
     Route: 048
     Dates: start: 20031002
  3. LASIX [Concomitant]
     Dosage: 20 MG
     Route: 042
     Dates: start: 20031009, end: 20031009
  4. LOVENOX [Concomitant]
     Dosage: 70-100 MG EVERY TWELVE HOURS
     Route: 058
     Dates: start: 20031003
  5. PAVULON [Concomitant]
     Dosage: UNK
     Route: 042
     Dates: start: 20031009, end: 20031009
  6. MANNITOL [Concomitant]
     Dosage: UNK
     Dates: start: 20031009, end: 20031009
  7. FUROSEMIDE [Concomitant]
     Dosage: UNK
     Route: 048
     Dates: start: 20030101
  8. LASIX [Concomitant]
     Dosage: UNK
     Route: 042
     Dates: start: 20031009, end: 20031012
  9. NATRECOR [Concomitant]
     Dosage: UNK
     Route: 042
     Dates: start: 20031002
  10. CEFAZOLIN [Concomitant]
     Dosage: 1 G
     Route: 042
     Dates: start: 20031009, end: 20031009
  11. HYDROCHLOROTHIAZIDE [Concomitant]
     Dosage: 12.5 MG, QD EVERY EVENING
     Route: 048
     Dates: start: 20030201, end: 20031009
  12. MAVIK [Concomitant]
     Dosage: UNK
     Route: 048
  13. TRASYLOL [Suspect]
     Indication: CORONARY ARTERY BYPASS
     Dosage: 1 ML, ONCE
     Route: 042
     Dates: start: 20031009, end: 20031009
  14. APRESOLINE [Concomitant]
     Dosage: 25 MG, TID
     Route: 048
     Dates: start: 20031002
  15. HEPARIN [Concomitant]
     Dosage: 41000 U
     Route: 042
     Dates: start: 20031009, end: 20031009
  16. OPTIRAY 300 [Concomitant]
     Indication: CATHETERISATION CARDIAC
     Dosage: 65 ML
     Dates: start: 20031006
  17. EPINEPHRINE [Concomitant]
     Dosage: TITRATED
     Route: 042
     Dates: start: 20031009, end: 20031015
  18. ISOFLURANE [Concomitant]
     Dosage: INHALED
     Dates: start: 20031009, end: 20031009
  19. OPTIRAY 300 [Concomitant]
     Indication: ANGIOGRAM
     Dosage: 70 ML
     Dates: start: 20030314
  20. TRASYLOL [Suspect]
     Dosage: 100 ML, LOADING DOSE
     Route: 042
     Dates: start: 20031009, end: 20031009
  21. ACETYLSALICYLIC ACID SRT [Concomitant]
     Dosage: 162 MG, QD
     Route: 048
     Dates: start: 19990101, end: 20031009
  22. TOPROL-XL [Concomitant]
     Dosage: 75 MG, QD
     Route: 048
     Dates: start: 20031002
  23. OPTIRAY 300 [Concomitant]
     Indication: AORTOGRAM
  24. AMOXICILLIN [Concomitant]
     Dosage: 500 MG, TID FOR ONE WEEK
     Route: 048
     Dates: start: 20030101
  25. CARDIZEM [Concomitant]
     Dosage: 240 MG, QD
     Route: 048
     Dates: start: 19950101
  26. HYDROCHLOROTHIAZIDE [Concomitant]
     Dosage: 25 MG, QD EVERY MORNING
     Route: 048
     Dates: start: 20030201, end: 20031009
  27. LASIX [Concomitant]
     Dosage: 20-60 MG TWICE DAILY
     Route: 048
     Dates: start: 20031002
  28. HEPARIN [Concomitant]
     Dosage: 23000 U
     Route: 042
     Dates: start: 20031009, end: 20031009
  29. HEPARIN [Concomitant]
     Dosage: 4000 U
     Route: 042
     Dates: start: 20031009, end: 20031009
  30. LASIX [Concomitant]
     Dosage: 60 MG, BID
     Route: 042
     Dates: start: 20031002
  31. PANCURONIUM [Concomitant]
     Dosage: 5 MG
     Route: 042
     Dates: start: 20031009, end: 20031009
  32. PROTAMINE SULFATE [Concomitant]
     Dosage: 500 MG
     Route: 042
     Dates: start: 20031009, end: 20031009
  33. RED BLOOD CELLS [Concomitant]
     Dosage: 2 U
     Route: 042

REACTIONS (12)
  - DEATH [None]
  - RENAL FAILURE [None]
  - DISABILITY [None]
  - INJURY [None]
  - ANHEDONIA [None]
  - PAIN [None]
  - GENERAL PHYSICAL HEALTH DETERIORATION [None]
  - ANXIETY [None]
  - STRESS [None]
  - FEAR [None]
  - UNEVALUABLE EVENT [None]
  - EMOTIONAL DISTRESS [None]
